FAERS Safety Report 5268832-8 (Version None)
Quarter: 2007Q1

REPORT INFORMATION
  Report Type: 
  Country: None (occurrence: None)
  Receive Date: 20061213
  Receipt Date: 20050323
  Transmission Date: 20070707
  Serious: No
  Sender: FDA-Public Use
  Company Number: 2004UW23950

PATIENT
  Age: 79 Year
  Sex: Female
  Weight: 55.791 kg

DRUGS (4)
  1. IRESSA [Suspect]
     Indication: NON-SMALL CELL LUNG CANCER
  2. BEDEPRION [Concomitant]
  3. LOMOTIL [Concomitant]
  4. LEVOTHROID [Concomitant]

REACTIONS (3)
  - ALOPECIA [None]
  - DIARRHOEA [None]
  - DISEASE PROGRESSION [None]
